FAERS Safety Report 8558249-2 (Version None)
Quarter: 2012Q3

REPORT INFORMATION
  Report Type: 
  Country: None (occurrence: None)
  Receive Date: 20120801
  Receipt Date: 20120730
  Transmission Date: 20120928
  Serious: Yes (Death, Hospitalization)
  Sender: FDA-Public Use
  Company Number: PHHY2012US065074

PATIENT
  Age: 51 Year
  Sex: Female

DRUGS (1)
  1. CLONAZEPAM [Suspect]

REACTIONS (19)
  - DEATH [None]
  - TOXICITY TO VARIOUS AGENTS [None]
  - HYPERHIDROSIS [None]
  - URINARY BLADDER RUPTURE [None]
  - TACHYPNOEA [None]
  - BRONCHOPNEUMONIA [None]
  - HEPATIC FIBROSIS [None]
  - PULMONARY CONGESTION [None]
  - PAIN [None]
  - UNRESPONSIVE TO STIMULI [None]
  - PULSE PRESSURE DECREASED [None]
  - DEPRESSED LEVEL OF CONSCIOUSNESS [None]
  - URINARY BLADDER HAEMORRHAGE [None]
  - PNEUMONITIS [None]
  - GENERAL PHYSICAL HEALTH DETERIORATION [None]
  - PULMONARY OEDEMA [None]
  - HEPATOMEGALY [None]
  - PYREXIA [None]
  - INTENTIONAL OVERDOSE [None]
